FAERS Safety Report 4480489-2 (Version None)
Quarter: 2004Q4

REPORT INFORMATION
  Report Type: 
  Country: None (occurrence: None)
  Receive Date: 20041018
  Receipt Date: 20041011
  Transmission Date: 20050328
  Serious: Yes (Other)
  Sender: FDA-Public Use
  Company Number: US-JNJFOC-20041003257

PATIENT
  Age: 46 Year
  Sex: Female

DRUGS (3)
  1. EXTRA STRENGTH TYLENOL [Suspect]
     Indication: HEADACHE
     Dosage: 1000 MG 1 IN 1 DAY
  2. V-CILLIN (PHENOXYMETHYLPENICILLIN) [Concomitant]
  3. HORMONE (ALL OTHER THERAPEUTIC PRODUCTS) [Concomitant]

REACTIONS (1)
  - DYSPNOEA [None]
